FAERS Safety Report 9682949 (Version 3)
Quarter: 2014Q2

REPORT INFORMATION
  Report Type: Spontaneous
  Country: US (occurrence: US)
  Receive Date: 20131112
  Receipt Date: 20140515
  Transmission Date: 20141212
  Serious: Yes (Disabling, Other)
  Sender: FDA-Public Use
  Company Number: US-009507513-1311USA003225

PATIENT
  Sex: Female
  Weight: 71.54 kg

DRUGS (8)
  1. FOSAMAX [Suspect]
     Indication: OSTEOPENIA
     Dosage: 70 MG, UNK
     Route: 048
     Dates: start: 20031016, end: 20070418
  2. FOSAMAX PLUS D [Suspect]
     Indication: OSTEOPENIA
     Dosage: 70 MG,5600
     Route: 048
     Dates: start: 20070419, end: 20100930
  3. ALENDRONATE SODIUM [Suspect]
     Dosage: UNK
     Route: 048
  4. CALCIUM (UNSPECIFIED) [Concomitant]
     Dosage: 1500 MG, UNK
     Dates: start: 1997
  5. MAGNESIUM (UNSPECIFIED) [Concomitant]
     Dosage: 800 MG, UNK
     Dates: start: 1997
  6. VITAMINS (UNSPECIFIED) [Concomitant]
     Dosage: 1 DF, UNK
     Dates: start: 1997
  7. AMITRIPTYLINE HYDROCHLORIDE [Concomitant]
     Indication: HYPOTONIA
     Dosage: UNK
     Dates: start: 1990
  8. CORTICOSTEROIDS (UNSPECIFIED) [Concomitant]
     Indication: SINUS DISORDER
     Dosage: UNK
     Dates: start: 1998

REACTIONS (27)
  - Femur fracture [Not Recovered/Not Resolved]
  - Femur fracture [Not Recovered/Not Resolved]
  - Rotator cuff repair [Unknown]
  - Surgery [Unknown]
  - Stress fracture [Not Recovered/Not Resolved]
  - Low turnover osteopathy [Not Recovered/Not Resolved]
  - Osteoporosis [Not Recovered/Not Resolved]
  - Debridement [Unknown]
  - Fall [Unknown]
  - Pain [Unknown]
  - Nasal polyps [Unknown]
  - Sinus operation [Unknown]
  - Phlebitis [Unknown]
  - Injection site granuloma [Unknown]
  - Bunion operation [Unknown]
  - Arthroscopy [Unknown]
  - Chronic sinusitis [Not Recovered/Not Resolved]
  - Rotator cuff syndrome [Unknown]
  - Osteoarthritis [Unknown]
  - Osteoporosis [Unknown]
  - Foot fracture [Unknown]
  - Severe acute respiratory syndrome [Unknown]
  - Osteoarthritis [Unknown]
  - Chest pain [Unknown]
  - Back pain [Unknown]
  - Arthralgia [Unknown]
  - Gastrooesophageal reflux disease [Unknown]
